FAERS Safety Report 4309444-X (Version None)
Quarter: 2004Q1

REPORT INFORMATION
  Report Type: 
  Country: None (occurrence: None)
  Receive Date: 20040302
  Receipt Date: 19960501
  Transmission Date: 20041129
  Serious: Yes (Life-Threatening, Hospitalization, Other)
  Sender: FDA-Public Use
  Company Number: 96USA14787

PATIENT
  Age: 41 Year
  Sex: Female

DRUGS (3)
  1. ROBAXIN [Concomitant]
     Dosage: 500 MG, BID
     Dates: start: 19950501
  2. ULTRAM [Concomitant]
  3. TEGRETOL [Suspect]
     Indication: BACK PAIN
     Dosage: 200 MG, BID
     Route: 048
     Dates: start: 19950501, end: 19950601

REACTIONS (49)
  - ARTHRALGIA [None]
  - AURICULAR SWELLING [None]
  - BLEPHAROSPASM [None]
  - BLINDNESS [None]
  - BLOOD POTASSIUM DECREASED [None]
  - BLOOD SODIUM DECREASED [None]
  - CHILLS [None]
  - CONJUNCTIVAL DEGENERATION [None]
  - CONJUNCTIVAL HYPERAEMIA [None]
  - CONJUNCTIVITIS [None]
  - CORNEAL DISORDER [None]
  - DEPRESSION [None]
  - DERMATITIS BULLOUS [None]
  - DERMATITIS EXFOLIATIVE [None]
  - DYSPHAGIA [None]
  - EYE DISCHARGE [None]
  - EYE PAIN [None]
  - EYE SWELLING [None]
  - GASTRITIS [None]
  - HAEMATEMESIS [None]
  - HAEMATOCRIT DECREASED [None]
  - HAEMOGLOBIN DECREASED [None]
  - MIGRAINE [None]
  - MUCOUS MEMBRANE DISORDER [None]
  - MYALGIA [None]
  - NAUSEA [None]
  - NECK PAIN [None]
  - NIGHT SWEATS [None]
  - OESOPHAGEAL DISCOMFORT [None]
  - ORAL CANDIDIASIS [None]
  - ORAL MUCOSAL PETECHIAE [None]
  - ORAL PAIN [None]
  - PAIN [None]
  - PHARYNGEAL ERYTHEMA [None]
  - PHARYNGEAL LESION [None]
  - PHARYNGOLARYNGEAL PAIN [None]
  - PHOTOPHOBIA [None]
  - PUNCTATE KERATITIS [None]
  - PYREXIA [None]
  - RASH GENERALISED [None]
  - SKIN DESQUAMATION [None]
  - SOMNOLENCE [None]
  - STEVENS-JOHNSON SYNDROME [None]
  - STOMATITIS [None]
  - SYMBLEPHARON [None]
  - VISUAL ACUITY REDUCED [None]
  - VOMITING [None]
  - WHEEZING [None]
  - WHITE BLOOD CELL COUNT INCREASED [None]
